FAERS Safety Report 9536062 (Version 1)
Quarter: 2013Q1

REPORT INFORMATION
  Report Type: Spontaneous
  Country: AU (occurrence: None)
  Receive Date: 20130327
  Receipt Date: 20130327
  Transmission Date: 20140127
  Serious: Yes (Other)
  Sender: FDA-Public Use
  Company Number: 2013-00192

PATIENT
  Age: 49 Year
  Sex: Female

DRUGS (1)
  1. MINOCYCLINE [Suspect]
     Indication: ROSACEA

REACTIONS (1)
  - Acute febrile neutrophilic dermatosis [None]
